FAERS Safety Report 19572736 (Version 1)
Quarter: 2021Q3

REPORT INFORMATION
  Report Type: Report from Study
  Country: FR (occurrence: FR)
  Receive Date: 20210716
  Receipt Date: 20210716
  Transmission Date: 20211014
  Serious: Yes (Hospitalization, Other)
  Sender: FDA-Public Use
  Company Number: FR-SHIRE-FR201810224

PATIENT
  Age: 62 Year
  Sex: Female
  Weight: 58 kg

DRUGS (48)
  1. TEDUGLUTIDE [Suspect]
     Active Substance: TEDUGLUTIDE
     Dosage: 2.6 MG, 1X/DAY:QD
     Route: 065
     Dates: start: 20160909, end: 20160914
  2. TEDUGLUTIDE [Suspect]
     Active Substance: TEDUGLUTIDE
     Dosage: 2.8 MG, 1X/DAY:QD
     Route: 065
     Dates: start: 20160915, end: 20161107
  3. TEDUGLUTIDE [Suspect]
     Active Substance: TEDUGLUTIDE
     Dosage: 2.8 MG, 1X/DAY:QD
     Route: 065
     Dates: start: 20160915, end: 20161107
  4. TEDUGLUTIDE [Suspect]
     Active Substance: TEDUGLUTIDE
     Dosage: 2.6 MG, 1X/DAY:QD
     Route: 065
     Dates: start: 20161108, end: 20161206
  5. TEDUGLUTIDE [Suspect]
     Active Substance: TEDUGLUTIDE
     Dosage: 2.8 MG, 1X/DAY:QD
     Route: 065
     Dates: start: 20170214, end: 20170220
  6. TEDUGLUTIDE [Suspect]
     Active Substance: TEDUGLUTIDE
     Dosage: 3 MG, 1X/DAY:QD
     Route: 065
     Dates: start: 20160404, end: 20160824
  7. TEDUGLUTIDE [Suspect]
     Active Substance: TEDUGLUTIDE
     Dosage: 2.6 MG, 1X/DAY:QD
     Route: 065
     Dates: start: 20170303, end: 20170411
  8. TEDUGLUTIDE [Suspect]
     Active Substance: TEDUGLUTIDE
     Dosage: 2.6 MG, 1X/DAY:QD
     Route: 065
     Dates: start: 20170303, end: 20170411
  9. TEDUGLUTIDE [Suspect]
     Active Substance: TEDUGLUTIDE
     Dosage: 2.8 MILLIGRAM (0.05MG/KG), QD
     Route: 065
     Dates: start: 20170412, end: 20181129
  10. TEDUGLUTIDE [Suspect]
     Active Substance: TEDUGLUTIDE
     Dosage: 2.8 MILLIGRAM (0.05MG/KG), QD
     Route: 065
     Dates: start: 20170412, end: 20181129
  11. TEDUGLUTIDE [Suspect]
     Active Substance: TEDUGLUTIDE
     Dosage: 2.8 MILLIGRAM (0.05MG/KG), QD
     Route: 065
     Dates: start: 20170412, end: 20181129
  12. TEDUGLUTIDE [Suspect]
     Active Substance: TEDUGLUTIDE
     Dosage: 2.4 MILLIGRAM (0.05MG/KG), QD
     Route: 065
     Dates: start: 20181130
  13. TEDUGLUTIDE [Suspect]
     Active Substance: TEDUGLUTIDE
     Dosage: 2.4 MILLIGRAM (0.05MG/KG), QD
     Route: 065
     Dates: start: 20181130
  14. LOVENOX [Concomitant]
     Active Substance: ENOXAPARIN SODIUM
     Indication: DEVICE RELATED THROMBOSIS
  15. TEDUGLUTIDE [Suspect]
     Active Substance: TEDUGLUTIDE
     Indication: SHORT-BOWEL SYNDROME
     Dosage: 2.8 MG, 1X/DAY:QD
     Route: 065
     Dates: start: 20170412
  16. TEDUGLUTIDE [Suspect]
     Active Substance: TEDUGLUTIDE
     Dosage: 2.6 MG, 1X/DAY:QD
     Route: 065
     Dates: start: 20160909, end: 20160914
  17. TEDUGLUTIDE [Suspect]
     Active Substance: TEDUGLUTIDE
     Dosage: 2.6 MG, 1X/DAY:QD
     Route: 065
     Dates: start: 20161108, end: 20161206
  18. CONTRAMAL [Concomitant]
     Active Substance: TRAMADOL HYDROCHLORIDE
     Indication: BACK PAIN
  19. COUMADINE [Concomitant]
     Active Substance: WARFARIN SODIUM
     Indication: THROMBOSIS PROPHYLAXIS
     Dosage: 1.50 MILLIGRAM, QD
     Route: 048
     Dates: start: 20191125
  20. COLECALCIFEROL [Concomitant]
     Active Substance: CHOLECALCIFEROL
     Indication: SHORT-BOWEL SYNDROME
     Dosage: 100000 INTERNATIONAL UNIT, MONTHLY
     Route: 048
     Dates: start: 20200214
  21. TEDUGLUTIDE [Suspect]
     Active Substance: TEDUGLUTIDE
     Dosage: 3 MG, 1X/DAY:QD
     Route: 065
     Dates: start: 20160404, end: 20160824
  22. TEDUGLUTIDE [Suspect]
     Active Substance: TEDUGLUTIDE
     Dosage: 2.8 MG, 1X/DAY:QD
     Route: 065
     Dates: start: 20160825, end: 20160908
  23. TEDUGLUTIDE [Suspect]
     Active Substance: TEDUGLUTIDE
     Dosage: 2.6 MG, 1X/DAY:QD
     Route: 065
     Dates: start: 20160909, end: 20160914
  24. TEDUGLUTIDE [Suspect]
     Active Substance: TEDUGLUTIDE
     Dosage: 2.6 MG, 1X/DAY:QD
     Route: 065
     Dates: start: 20161108, end: 20161206
  25. TEDUGLUTIDE [Suspect]
     Active Substance: TEDUGLUTIDE
     Dosage: 2.4 MILLIGRAM (0.05MG/KG), QD
     Route: 065
     Dates: start: 20181130
  26. TEDUGLUTIDE [Suspect]
     Active Substance: TEDUGLUTIDE
     Dosage: 2.4 MILLIGRAM (0.05MG/KG), QD
     Route: 065
     Dates: start: 20181130
  27. TEDUGLUTIDE [Suspect]
     Active Substance: TEDUGLUTIDE
     Indication: SHORT-BOWEL SYNDROME
     Dosage: 2.8 MG, 1X/DAY:QD
     Route: 065
     Dates: start: 20170412
  28. TEDUGLUTIDE [Suspect]
     Active Substance: TEDUGLUTIDE
     Dosage: 3 MG, 1X/DAY:QD
     Route: 065
     Dates: start: 20160404, end: 20160824
  29. TEDUGLUTIDE [Suspect]
     Active Substance: TEDUGLUTIDE
     Dosage: 2.6 MG, 1X/DAY:QD
     Route: 065
     Dates: start: 20160909, end: 20160914
  30. TEDUGLUTIDE [Suspect]
     Active Substance: TEDUGLUTIDE
     Dosage: 2.8 MG, 1X/DAY:QD
     Route: 065
     Dates: start: 20170214, end: 20170220
  31. TEDUGLUTIDE [Suspect]
     Active Substance: TEDUGLUTIDE
     Dosage: 2.6 MG, 1X/DAY:QD
     Route: 065
     Dates: start: 20170303, end: 20170411
  32. CALCIUM CARBONATE. [Concomitant]
     Active Substance: CALCIUM CARBONATE
     Indication: SHORT-BOWEL SYNDROME
     Dosage: 500 MILLIGRAM, QD
     Route: 048
     Dates: start: 20200214
  33. TEDUGLUTIDE [Suspect]
     Active Substance: TEDUGLUTIDE
     Dosage: 2.8 MG, 1X/DAY:QD
     Route: 065
     Dates: start: 20160915, end: 20161107
  34. TEDUGLUTIDE [Suspect]
     Active Substance: TEDUGLUTIDE
     Dosage: 2.8 MG, 1X/DAY:QD
     Route: 065
     Dates: start: 20170214, end: 20170220
  35. TEDUGLUTIDE [Suspect]
     Active Substance: TEDUGLUTIDE
     Indication: SHORT-BOWEL SYNDROME
     Dosage: 2.8 MG, 1X/DAY:QD
     Route: 065
     Dates: start: 20170412
  36. TEDUGLUTIDE [Suspect]
     Active Substance: TEDUGLUTIDE
     Dosage: 3 MG, 1X/DAY:QD
     Route: 065
     Dates: start: 20160404, end: 20160824
  37. TEDUGLUTIDE [Suspect]
     Active Substance: TEDUGLUTIDE
     Dosage: 2.8 MG, 1X/DAY:QD
     Route: 065
     Dates: start: 20160825, end: 20160908
  38. TEDUGLUTIDE [Suspect]
     Active Substance: TEDUGLUTIDE
     Dosage: 2.8 MG, 1X/DAY:QD
     Route: 065
     Dates: start: 20160825, end: 20160908
  39. TEDUGLUTIDE [Suspect]
     Active Substance: TEDUGLUTIDE
     Dosage: 2.8 MG, 1X/DAY:QD
     Route: 065
     Dates: start: 20160915, end: 20161107
  40. TEDUGLUTIDE [Suspect]
     Active Substance: TEDUGLUTIDE
     Dosage: 2.6 MG, 1X/DAY:QD
     Route: 065
     Dates: start: 20161108, end: 20161206
  41. TEDUGLUTIDE [Suspect]
     Active Substance: TEDUGLUTIDE
     Dosage: 2.8 MG, 1X/DAY:QD
     Route: 065
     Dates: start: 20170214, end: 20170220
  42. LOVENOX [Concomitant]
     Active Substance: ENOXAPARIN SODIUM
     Indication: VENA CAVA THROMBOSIS
  43. MAGNESIUM SULFATE. [Concomitant]
     Active Substance: MAGNESIUM SULFATE
     Indication: SHORT-BOWEL SYNDROME
     Dosage: 15000 MILLIGRAM, CONTINUOUS RUNNING
     Route: 042
     Dates: start: 201911
  44. TEDUGLUTIDE [Suspect]
     Active Substance: TEDUGLUTIDE
     Indication: SHORT-BOWEL SYNDROME
     Dosage: 2.8 MG, 1X/DAY:QD
     Route: 065
     Dates: start: 20170412
  45. TEDUGLUTIDE [Suspect]
     Active Substance: TEDUGLUTIDE
     Dosage: 2.8 MG, 1X/DAY:QD
     Route: 065
     Dates: start: 20160825, end: 20160908
  46. TEDUGLUTIDE [Suspect]
     Active Substance: TEDUGLUTIDE
     Dosage: 2.6 MG, 1X/DAY:QD
     Route: 065
     Dates: start: 20170303, end: 20170411
  47. TEDUGLUTIDE [Suspect]
     Active Substance: TEDUGLUTIDE
     Dosage: 2.8 MILLIGRAM (0.05MG/KG), QD
     Route: 065
     Dates: start: 20170412, end: 20181129
  48. COUMADINE [Concomitant]
     Active Substance: WARFARIN SODIUM
     Indication: PROPHYLAXIS
     Dosage: 7 MG PER WEEK
     Dates: start: 20160404, end: 20160824

REACTIONS (4)
  - Thrombophlebitis superficial [Not Recovered/Not Resolved]
  - Jugular vein thrombosis [Recovered/Resolved]
  - Vena cava thrombosis [Not Recovered/Not Resolved]
  - Brachiocephalic vein thrombosis [Not Recovered/Not Resolved]

NARRATIVE: CASE EVENT DATE: 20170929
